FAERS Safety Report 10506163 (Version 2)
Quarter: 2014Q4

REPORT INFORMATION
  Report Type: Spontaneous
  Country: CA (occurrence: CA)
  Receive Date: 20141009
  Receipt Date: 20141114
  Transmission Date: 20150528
  Serious: Yes (Other)
  Sender: FDA-Public Use
  Company Number: CA-AMGEN-CANSP2014076302

PATIENT
  Age: 56 Year
  Sex: Female
  Weight: 60.1 kg

DRUGS (16)
  1. DOMPERIDONE [Concomitant]
     Active Substance: DOMPERIDONE
     Dosage: 10 MG, TID
     Route: 048
  2. ASA [Concomitant]
     Active Substance: ASPIRIN
     Dosage: 81 MG, QD
     Route: 048
  3. ARANESP [Suspect]
     Active Substance: DARBEPOETIN ALFA
     Indication: ANAEMIA
  4. COVERSYL                           /00790702/ [Concomitant]
     Active Substance: PERINDOPRIL
     Dosage: 8 MG, QD
  5. ARANESP [Suspect]
     Active Substance: DARBEPOETIN ALFA
     Indication: RENAL DISORDER
     Dosage: 30 MUG, QWK
     Route: 065
     Dates: start: 20120123, end: 201407
  6. FERROUS GLUCONATE [Concomitant]
     Active Substance: FERROUS GLUCONATE
     Dosage: 900 MG, QHS
     Route: 048
  7. ARTHRO                             /00372303/ [Concomitant]
  8. NEXIUM [Concomitant]
     Active Substance: ESOMEPRAZOLE MAGNESIUM
  9. GRAVOL [Concomitant]
     Active Substance: DIMENHYDRINATE
  10. LEFLUNOMIDE. [Concomitant]
     Active Substance: LEFLUNOMIDE
     Dosage: 10 MG, QD
  11. ARTHROTEC [Concomitant]
     Active Substance: DICLOFENAC SODIUM\MISOPROSTOL
  12. METHOTREXATE [Concomitant]
     Active Substance: METHOTREXATE
     Dosage: 17.5 MG, QWK
     Route: 048
  13. FOLIC ACID. [Concomitant]
     Active Substance: FOLIC ACID
     Dosage: 5 MG, QD
     Route: 048
  14. TYLENOL [Concomitant]
     Active Substance: ACETAMINOPHEN
     Dosage: UNK UNK, AS NECESSARY
  15. EZETROL [Concomitant]
     Active Substance: EZETIMIBE
  16. ROSUVASTATIN [Concomitant]
     Active Substance: ROSUVASTATIN
     Dosage: 5 MG, QD

REACTIONS (8)
  - Dyspnoea exertional [Unknown]
  - Diarrhoea [Recovering/Resolving]
  - Vomiting [Recovering/Resolving]
  - Brain injury [Unknown]
  - Influenza [Recovering/Resolving]
  - Cerebrovascular accident [Recovering/Resolving]
  - Diplopia [Unknown]
  - Decreased appetite [Unknown]

NARRATIVE: CASE EVENT DATE: 20120307
